APPROVED DRUG PRODUCT: GABAPENTIN
Active Ingredient: GABAPENTIN
Strength: 400MG
Dosage Form/Route: CAPSULE;ORAL
Application: A078787 | Product #003 | TE Code: AB
Applicant: AUROBINDO PHARMA LTD
Approved: Jan 31, 2008 | RLD: No | RS: No | Type: RX